FAERS Safety Report 8099427-9 (Version None)
Quarter: 2012Q1

REPORT INFORMATION
  Report Type: 
  Country: None (occurrence: None)
  Receive Date: 20120129
  Receipt Date: 20111004
  Transmission Date: 20120608
  Serious: Yes (Hospitalization)
  Sender: FDA-Public Use
  Company Number: US-ABBOTT-11P-163-0861533-00

PATIENT
  Age: 43 Year
  Sex: Female

DRUGS (7)
  1. OXYCODONE HCL [Concomitant]
     Indication: BACK PAIN
  2. NAPROXEN [Concomitant]
     Indication: PRODUCT USED FOR UNKNOWN INDICATION
  3. TAZORAC [Concomitant]
     Indication: PSORIASIS
  4. OXYCODONE HCL [Concomitant]
     Indication: ARTHRALGIA
  5. HUMIRA [Suspect]
     Indication: PSORIATIC ARTHROPATHY
     Route: 058
     Dates: start: 20110701
  6. CLEPIADAZOLE [Concomitant]
     Indication: PRODUCT USED FOR UNKNOWN INDICATION
  7. SAVELLA [Concomitant]
     Indication: FIBROMYALGIA

REACTIONS (4)
  - IMMUNOSUPPRESSION [None]
  - WHEEZING [None]
  - FURUNCLE [None]
  - DECREASED IMMUNE RESPONSIVENESS [None]
